FAERS Safety Report 13259536 (Version 2)
Quarter: 2017Q1

REPORT INFORMATION
  Report Type: Report from Study
  Country: CR (occurrence: CR)
  Receive Date: 20170222
  Receipt Date: 20170329
  Transmission Date: 20170428
  Serious: Yes (Life-Threatening, Other)
  Sender: FDA-Public Use
  Company Number: PHHY2017CR026288

PATIENT
  Age: 61 Year
  Sex: Female

DRUGS (1)
  1. CO-DIOVAN [Suspect]
     Active Substance: HYDROCHLOROTHIAZIDE\VALSARTAN
     Indication: HYPERTENSION
     Dosage: 1 DF (HYDROCHLOROTHIAZIDE 25 MG, VALSARTAN 320 MG), QD
     Route: 048
     Dates: start: 2015, end: 20170307

REACTIONS (9)
  - Chest pain [Unknown]
  - Drug ineffective [Unknown]
  - Infarction [Unknown]
  - Vascular insufficiency [Unknown]
  - Blood pressure increased [Unknown]
  - Pain [Not Recovered/Not Resolved]
  - Apparent death [Unknown]
  - Blood pressure fluctuation [Unknown]
  - Dyspnoea [Unknown]

NARRATIVE: CASE EVENT DATE: 201701
